FAERS Safety Report 14393595 (Version 1)
Quarter: 2018Q1

REPORT INFORMATION
  Report Type: Spontaneous
  Country: US (occurrence: US)
  Receive Date: 20180116
  Receipt Date: 20180116
  Transmission Date: 20180509
  Serious: Yes (Disabling, Other)
  Sender: FDA-Public Use
  Company Number: None

PATIENT
  Age: 87 Year
  Sex: Female
  Weight: 66.22 kg

DRUGS (9)
  1. CARVEDILOL 25MG [Suspect]
     Active Substance: CARVEDILOL
     Indication: PACEMAKER SYNDROME
     Dosage: 25 MG (1) 2X DAY 2X DAY AM-BEDTIME MOUTH
     Route: 048
     Dates: start: 20170707, end: 20170928
  2. LISINOPRIL. [Concomitant]
     Active Substance: LISINOPRIL
  3. MILK OF MAGNESIA [Concomitant]
     Active Substance: MAGNESIUM HYDROXIDE
  4. ELIQUIS [Concomitant]
     Active Substance: APIXABAN
  5. CARVEDILOL 25MG [Suspect]
     Active Substance: CARVEDILOL
     Indication: BLOOD PRESSURE MEASUREMENT
     Dosage: 25 MG (1) 2X DAY 2X DAY AM-BEDTIME MOUTH
     Route: 048
     Dates: start: 20170707, end: 20170928
  6. DILTIAZAM CD [Concomitant]
     Active Substance: DILTIAZEM
  7. CLINDMYCIN [Concomitant]
  8. VOLTARIN [Concomitant]
  9. TYLENOL [Concomitant]
     Active Substance: ACETAMINOPHEN

REACTIONS (4)
  - Musculoskeletal stiffness [None]
  - Peripheral swelling [None]
  - Fatigue [None]
  - Asthenia [None]
